FAERS Safety Report 19816797 (Version 3)
Quarter: 2022Q1

REPORT INFORMATION
  Report Type: Spontaneous
  Country: AR (occurrence: AR)
  Receive Date: 20210909
  Receipt Date: 20220118
  Transmission Date: 20220424
  Serious: Yes (Hospitalization, Other)
  Sender: FDA-Public Use
  Company Number: AR-PFIZER INC-202101132411

PATIENT
  Age: 62 Year
  Sex: Male

DRUGS (1)
  1. ENBREL [Suspect]
     Active Substance: ETANERCEPT
     Indication: Rheumatoid arthritis
     Dosage: 25 MG, WEEKLY
     Route: 065
     Dates: start: 20111111

REACTIONS (4)
  - Pulmonary thrombosis [Unknown]
  - Gait disturbance [Unknown]
  - COVID-19 [Unknown]
  - Off label use [Unknown]

NARRATIVE: CASE EVENT DATE: 20111111
